FAERS Safety Report 7501899-2 (Version None)
Quarter: 2011Q2

REPORT INFORMATION
  Report Type: 
  Country: None (occurrence: None)
  Receive Date: 20110525
  Receipt Date: 20110513
  Transmission Date: 20111010
  Serious: Yes (Hospitalization)
  Sender: FDA-Public Use
  Company Number: BE-JNJFOC-20110305029

PATIENT
  Sex: Male
  Weight: 93 kg

DRUGS (2)
  1. STELARA [Suspect]
     Indication: PSORIASIS
     Route: 058
     Dates: start: 20100603, end: 20101214
  2. METHOTREXATE [Suspect]
     Indication: PSORIASIS

REACTIONS (1)
  - PNEUMONIA [None]
